FAERS Safety Report 9036757 (Version 1)
Quarter: 2012Q4

REPORT INFORMATION
  Report Type: Spontaneous
  Country: US (occurrence: None)
  Receive Date: 20121130
  Receipt Date: 20121130
  Transmission Date: 20130627
  Serious: Yes (Other)
  Sender: FDA-Public Use
  Company Number: 2012034093

PATIENT
  Sex: Female
  Weight: 66.68 kg

DRUGS (28)
  1. HIZENTRA [Suspect]
     Dates: start: 201211
  2. HIZENTRA [Suspect]
     Dosage: 45 ml 1-2 hours via 3 sites subcutaneous
     Route: 058
  3. HIZENTRA [Suspect]
     Dates: start: 201211
  4. HIZENTRA [Suspect]
     Dosage: 45 ml 1-2 h9urs via 3 sites subcutaneous
     Route: 058
  5. LMX CREAM (LIDOCAINE) [Concomitant]
  6. SODIUM CHLORIDE (SODIUM CHLORIDE) [Concomitant]
  7. BANOPHEN (DIPHENHYDRAMINE HYDROCHLORIDE) [Concomitant]
  8. EPI-PEN (EPINEPHRINE GHYDROCHLORIDE) [Concomitant]
  9. CYMBALTA (DULOXETINE HYDROCHLORIDE) [Concomitant]
  10. PROTONIX (PANTOPRAZOLE) [Concomitant]
  11. ASTEPRO (AZALASTINE) [Concomitant]
  12. EX-LAX (SENNA ALEXANDRINA) [Concomitant]
  13. CARVEDILOL (CARVEDILOL) [Concomitant]
  14. TOPIRAMATE (TOPIRAMATE) [Concomitant]
  15. ASPIRIN (ACETYLSALICYLIC ACID) [Concomitant]
  16. GABAPENTIN (GABAPENTIN) [Concomitant]
  17. BACLOFEN (BACLOFEN) [Concomitant]
  18. FERROU SULFATE (FERROUS SULFATE) [Concomitant]
  19. ALPRAZOLAM (ALPRAZOLAM) [Concomitant]
  20. CREATOR (ROSUVASTATIN) [Concomitant]
  21. IBUPROFEN (IBUPROFEN) [Concomitant]
  22. PLAVIS (CLOPIDOGREL) [Concomitant]
  23. WELCHOL (COLESEVELAM HYDROCHLORIDE) [Concomitant]
  24. VITAMIN C (ASCORBIC ACID) [Concomitant]
  25. BETASERON (BETASERON) [Concomitant]
  26. VITAMIN B VITAMIN B) [Concomitant]
  27. GINGER ROOT (HERBAL PREPARAPTION) [Concomitant]
  28. VITAMIN D (ERGOCALCIFEROL) [Concomitant]

REACTIONS (2)
  - Epistaxis [None]
  - Haemoptysis [None]
